FAERS Safety Report 11741207 (Version 2)
Quarter: 2015Q4

REPORT INFORMATION
  Report Type: Spontaneous
  Country: US (occurrence: US)
  Receive Date: 20151116
  Receipt Date: 20151203
  Transmission Date: 20160304
  Serious: No
  Sender: FDA-Public Use
  Company Number: US-ELI_LILLY_AND_COMPANY-US201511004341

PATIENT
  Age: 65 Year
  Sex: Female
  Weight: 49.9 kg

DRUGS (5)
  1. FORTEO [Suspect]
     Active Substance: TERIPARATIDE
     Dosage: UNK, QD
     Route: 065
     Dates: start: 20151101
  2. FORTEO [Suspect]
     Active Substance: TERIPARATIDE
     Indication: OSTEOPOROSIS
     Dosage: UNK, QD
     Route: 065
     Dates: start: 201507, end: 20151030
  3. FORTEO [Suspect]
     Active Substance: TERIPARATIDE
     Dosage: UNK, QD
     Route: 065
     Dates: start: 20151101
  4. FORTEO [Suspect]
     Active Substance: TERIPARATIDE
     Dosage: UNK, QD
     Route: 065
     Dates: start: 20151101
  5. CALCIUM [Concomitant]
     Active Substance: CALCIUM

REACTIONS (8)
  - Spinal fracture [Unknown]
  - Drug ineffective [Unknown]
  - Weight decreased [Not Recovered/Not Resolved]
  - Drug dose omission [Recovered/Resolved]
  - Fall [Unknown]
  - Vomiting [Unknown]
  - Lower limb fracture [Unknown]
  - Nausea [Not Recovered/Not Resolved]

NARRATIVE: CASE EVENT DATE: 201510
